FAERS Safety Report 8535855-2 (Version None)
Quarter: 2012Q3

REPORT INFORMATION
  Report Type: 
  Country: None (occurrence: None)
  Receive Date: 20120725
  Receipt Date: 20120720
  Transmission Date: 20120928
  Serious: Yes (Hospitalization)
  Sender: FDA-Public Use
  Company Number: FR-SANOFI-AVENTIS-2012SA035644

PATIENT
  Age: 53 Year
  Sex: Male

DRUGS (11)
  1. PHOLCODINE [Concomitant]
     Dates: start: 20120216
  2. ATORVASTATIN [Concomitant]
     Route: 048
     Dates: start: 20110101
  3. LASIX [Suspect]
     Route: 065
     Dates: start: 20110101
  4. CORDARONE [Suspect]
     Route: 048
     Dates: start: 20110101
  5. PERINDOPRIL ERBUMINE [Concomitant]
     Route: 048
     Dates: start: 20110101
  6. BISOPROLOL FUMARATE [Suspect]
     Route: 048
     Dates: start: 20110101
  7. PREVISCAN [Concomitant]
     Route: 048
     Dates: start: 20110101
  8. PANOS [Concomitant]
     Route: 048
     Dates: start: 20120216
  9. POTASSIUM CHLORIDE [Concomitant]
     Route: 048
     Dates: start: 20110101
  10. CEFPODOXIME PROXETIL [Concomitant]
     Route: 048
     Dates: start: 20120216
  11. ACETAMINOPHEN [Concomitant]
     Route: 048
     Dates: start: 20120216

REACTIONS (2)
  - ARRHYTHMIA [None]
  - SYNCOPE [None]
